FAERS Safety Report 25851982 (Version 2)
Quarter: 2025Q4

REPORT INFORMATION
  Report Type: Spontaneous
  Country: GB (occurrence: GB)
  Receive Date: 20250926
  Receipt Date: 20251228
  Transmission Date: 20260118
  Serious: Yes (Other)
  Sender: JOHNSON AND JOHNSON
  Company Number: GB-JNJFOC-20250118128

PATIENT
  Sex: Female

DRUGS (3)
  1. TECLISTAMAB [Suspect]
     Active Substance: TECLISTAMAB
     Indication: Product used for unknown indication
  2. TECLISTAMAB [Suspect]
     Active Substance: TECLISTAMAB
  3. IMMUNOGLOBULINS [Concomitant]
     Indication: Product used for unknown indication

REACTIONS (7)
  - Polyneuropathy [Unknown]
  - Fungal infection [Not Recovered/Not Resolved]
  - Chronic sinusitis [Not Recovered/Not Resolved]
  - Decreased appetite [Unknown]
  - Injection site rash [Unknown]
  - Weight decreased [Unknown]
  - Fluid retention [Unknown]
